FAERS Safety Report 11592719 (Version 1)
Quarter: 2015Q4

REPORT INFORMATION
  Report Type: Spontaneous
  Country: FR (occurrence: FR)
  Receive Date: 20151005
  Receipt Date: 20151005
  Transmission Date: 20160304
  Serious: Yes (Hospitalization)
  Sender: FDA-Public Use
  Company Number: FR-PFIZER INC-2015323148

PATIENT
  Age: 85 Year
  Sex: Female

DRUGS (7)
  1. PRADAXA [Interacting]
     Active Substance: DABIGATRAN ETEXILATE MESYLATE
     Dosage: 110 MG, 1 DF 2X/DAY IN THE MORNING AND IN THE EVENING
     Route: 048
     Dates: end: 20150716
  2. LASILIX SPECIAL /00032601/ [Concomitant]
     Active Substance: FUROSEMIDE
     Dosage: 0.5 DF OF 500 MG, 3X/DAY
  3. SELOKEN /00376902/ [Concomitant]
     Active Substance: METOPROLOL TARTRATE
     Dosage: 100 MG, 1 DF 1X/DAY IN THE MORNING
  4. DIFFU K [Concomitant]
     Active Substance: POTASSIUM CHLORIDE
     Dosage: 3 DF OF 600 MG, 3X/DAY
  5. TERCIAN /00759301/ [Concomitant]
     Active Substance: CYAMEMAZINE
     Dosage: 3 GTT, 3X/DAY
  6. DUPHALAC [Concomitant]
     Active Substance: LACTULOSE
     Dosage: 1 DF OF 10 MG/15 ML, 1X/DAY AT NOON
  7. EFFEXOR LP [Suspect]
     Active Substance: VENLAFAXINE HYDROCHLORIDE
     Dosage: 75 MG, 1DF 1X/DAY IN THE MORNING
     Route: 048

REACTIONS (3)
  - Rectal haemorrhage [Recovered/Resolved]
  - Drug interaction [Recovering/Resolving]
  - Anaemia [Recovering/Resolving]

NARRATIVE: CASE EVENT DATE: 20150713
